FAERS Safety Report 8538561-3 (Version None)
Quarter: 2012Q3

REPORT INFORMATION
  Report Type: 
  Country: None (occurrence: None)
  Receive Date: 20120718
  Receipt Date: 20120718
  Transmission Date: 20120928
  Serious: No
  Sender: FDA-Public Use
  Company Number: None

PATIENT
  Sex: Female
  Weight: 95.2554 kg

DRUGS (2)
  1. TOVIAZ [Suspect]
     Indication: COUGH
     Dosage: 1 TAB DAILY
     Dates: start: 20120607, end: 20120614
  2. TOVIAZ [Suspect]
     Indication: URINARY INCONTINENCE
     Dosage: 1 TAB DAILY
     Dates: start: 20120607, end: 20120614

REACTIONS (2)
  - DRY MOUTH [None]
  - ABDOMINAL PAIN UPPER [None]
